FAERS Safety Report 8912346 (Version 16)
Quarter: 2014Q3

REPORT INFORMATION
  Report Type: Spontaneous
  Country: JP (occurrence: JP)
  Receive Date: 20121116
  Receipt Date: 20140822
  Transmission Date: 20150326
  Serious: Yes (Death, Hospitalization, Other)
  Sender: FDA-Public Use
  Company Number: JP-CELGENEUS-087-21880-12111506

PATIENT
  Age: 76 Year
  Sex: Male
  Weight: 68.5 kg

DRUGS (46)
  1. FUROSEMIDE. [Concomitant]
     Active Substance: FUROSEMIDE
  2. ASPIRIN. [Concomitant]
     Active Substance: ASPIRIN
  3. CLARITHROMYCIN. [Concomitant]
     Active Substance: CLARITHROMYCIN
  4. RED BLOOD CELLS [Concomitant]
     Active Substance: HUMAN RED BLOOD CELL
  5. FOLIC ACID. [Concomitant]
     Active Substance: FOLIC ACID
  6. LENADEX [Suspect]
     Active Substance: DEXAMETHASONE ACETATE
     Indication: CONJUNCTIVITIS ALLERGIC
  7. ISOSORBIDE DINITRATE. [Concomitant]
     Active Substance: ISOSORBIDE DINITRATE
  8. LEVOFLOXACIN HEMIHYDRATE [Concomitant]
     Active Substance: LEVOFLOXACIN
  9. DIPHENHYDRAMINE [Concomitant]
     Active Substance: DIPHENHYDRAMINE
  10. PIRENOXINE [Concomitant]
     Active Substance: PIRENOXINE
  11. MOXIFLOXACIN HYDROCHLORIDE. [Concomitant]
     Active Substance: MOXIFLOXACIN HYDROCHLORIDE
  12. OLOPATADINE HYDROCHLORIDE. [Concomitant]
     Active Substance: OLOPATADINE HYDROCHLORIDE
  13. BETAMETHASONE SODIUM PHOSPHATE [Concomitant]
     Active Substance: BETAMETHASONE SODIUM PHOSPHATE
  14. PENTOXYVERINE CITRATE [Concomitant]
     Active Substance: PENTOXYVERINE CITRATE
  15. REVLIMID [Suspect]
     Active Substance: LENALIDOMIDE
     Indication: ARTHRALGIA
  16. MICAMLO COMBINATION [Concomitant]
     Active Substance: AMLODIPINE BESYLATE\TELMISARTAN
  17. KETOPROFEN. [Concomitant]
     Active Substance: KETOPROFEN
  18. SARPOGRELATE HYDROCHLORIDE [Concomitant]
     Active Substance: SARPOGRELATE
  19. HYALURONATE SODIUM [Concomitant]
     Active Substance: HYALURONATE SODIUM
  20. LACB [Concomitant]
  21. HERBAL NOS [Concomitant]
     Active Substance: HERBALS
  22. MEROPENEM HYDRATE [Concomitant]
     Active Substance: MEROPENEM
  23. AZOSEMIDE [Concomitant]
     Active Substance: AZOSEMIDE
  24. CALONAL [Concomitant]
     Active Substance: ACETAMINOPHEN
  25. SENNOSIDE [Concomitant]
     Active Substance: SENNOSIDES
  26. SODIUM BICARBONATE. [Concomitant]
     Active Substance: SODIUM BICARBONATE
  27. TRAMADOL HYDROCHLORIDE. [Concomitant]
     Active Substance: TRAMADOL HYDROCHLORIDE
  28. POVIDONE IODINE [Concomitant]
     Active Substance: POVIDONE-IODINE
  29. NITROGLYCERIN. [Concomitant]
     Active Substance: NITROGLYCERIN
  30. FLUCONAZOLE. [Concomitant]
     Active Substance: FLUCONAZOLE
  31. ELOTUZUMAB [Suspect]
     Active Substance: ELOTUZUMAB
     Indication: CEREBRAL INFARCTION
  32. BAKTAR [Concomitant]
     Active Substance: SULFAMETHOXAZOLE\TRIMETHOPRIM
  33. LANSOPRAZOLE. [Concomitant]
     Active Substance: LANSOPRAZOLE
  34. DICLOFENAC SODIUM. [Concomitant]
     Active Substance: DICLOFENAC SODIUM
  35. CLINDAMYCIN HYDROCHLORIDE. [Concomitant]
     Active Substance: CLINDAMYCIN HYDROCHLORIDE
  36. METOCLOPRAMIDE. [Concomitant]
     Active Substance: METOCLOPRAMIDE
  37. CEFCAPENE PIVOXIL HYDROCHLORIDE [Concomitant]
     Active Substance: CEFCAPENE PIVOXIL HYDROCHLORIDE
  38. TRAPIDIL [Concomitant]
     Active Substance: TRAPIDIL
  39. NICERGORINE [Concomitant]
  40. VALACYCLOVIR HYDROCHLORIDE. [Concomitant]
     Active Substance: VALACYCLOVIR HYDROCHLORIDE
  41. NIFEDIPINE. [Concomitant]
     Active Substance: NIFEDIPINE
  42. PENTAZOCINE HYDROCHLORIDE [Concomitant]
     Active Substance: PENTAZOCINE HYDROCHLORIDE
  43. FLUOROMETHOLONE. [Concomitant]
     Active Substance: FLUOROMETHOLONE
  44. PYDOXAL [Concomitant]
     Active Substance: PYRIDOXAL
  45. TERBINAFINE HYDROCHLORIDE. [Concomitant]
     Active Substance: TERBINAFINE HYDROCHLORIDE
  46. SULFADIAZINE. [Concomitant]
     Active Substance: SULFADIAZINE

REACTIONS (3)
  - Pneumonia [Recovered/Resolved]
  - Myelodysplastic syndrome [Fatal]
  - Cataract [Recovered/Resolved]

NARRATIVE: CASE EVENT DATE: 20121106
